FAERS Safety Report 16291557 (Version 1)
Quarter: 2019Q2

REPORT INFORMATION
  Report Type: Spontaneous
  Country: FR (occurrence: FR)
  Receive Date: 20190509
  Receipt Date: 20190509
  Transmission Date: 20190711
  Serious: Yes (Hospitalization)
  Sender: FDA-Public Use
  Company Number: FR-JNJFOC-20190445822

PATIENT
  Age: 18 Year
  Sex: Male
  Weight: 47 kg

DRUGS (2)
  1. SIRTURO [Suspect]
     Active Substance: BEDAQUILINE FUMARATE
     Indication: ATYPICAL MYCOBACTERIAL INFECTION
     Route: 048
     Dates: start: 20190301, end: 20190321
  2. NOXAFIL [Suspect]
     Active Substance: POSACONAZOLE
     Indication: SELF-MEDICATION
     Route: 048
     Dates: start: 20190319, end: 20190321

REACTIONS (5)
  - Off label use [Unknown]
  - Opsoclonus myoclonus [Recovered/Resolved]
  - Product use in unapproved indication [Unknown]
  - Tremor [Recovered/Resolved]
  - Medication error [Recovered/Resolved]

NARRATIVE: CASE EVENT DATE: 20190301
